FAERS Safety Report 8180203-3 (Version None)
Quarter: 2012Q1

REPORT INFORMATION
  Report Type: 
  Country: None (occurrence: None)
  Receive Date: 20120302
  Receipt Date: 20120220
  Transmission Date: 20120608
  Serious: Yes (Other)
  Sender: FDA-Public Use
  Company Number: US-UCBSA-051936

PATIENT
  Age: 48 Year
  Sex: Male
  Weight: 72.7 kg

DRUGS (14)
  1. FENOFIBRATE [Concomitant]
     Route: 048
     Dates: start: 20100101
  2. ALENDRONATE SODIUM [Concomitant]
     Indication: OSTEOPENIA
     Dosage: FROM 4 YEARS
     Route: 048
  3. LEFLUNOMIDE [Concomitant]
     Indication: ARTHRITIS
     Route: 048
     Dates: start: 20090401
  4. CLOBETASOL PROPIONATE [Concomitant]
     Indication: PSORIASIS
     Dosage: SOLUTION 0.05 %, 0.05% SCALP
     Route: 061
  5. FOLIC ACID [Concomitant]
     Indication: SUPPLEMENTATION THERAPY
     Route: 048
     Dates: start: 20090401
  6. ROPINIROLE [Concomitant]
     Indication: RESTLESS LEGS SYNDROME
     Route: 048
     Dates: start: 20090101
  7. GABAPENTIN [Concomitant]
     Indication: RESTLESS LEGS SYNDROME
     Dosage: UPTO 800 MG, 400-800 MG DAILY
     Route: 048
     Dates: start: 20090101
  8. BETAMETHASONE [Concomitant]
     Indication: PSORIASIS
     Dosage: 0.1% OINTMENT, GROIN AREA
     Route: 061
     Dates: start: 20111101
  9. GEMFIBROZOLE [Concomitant]
     Route: 048
     Dates: start: 20110101
  10. LEVOTHYROXINE SODIUM [Concomitant]
     Indication: THYROID DISORDER
     Dosage: FROM 3 TO 4 YEARS
     Route: 048
  11. METHOTREXATE [Concomitant]
     Dosage: 2.5 MG EVERY OTHER DAY
     Route: 048
     Dates: start: 19930101
  12. CLONAZEPAM [Concomitant]
     Indication: ANXIETY
     Dosage: 0.5 MG TABLET AS NEEDED, UPTO 1.0 MG
     Route: 048
     Dates: start: 20080101
  13. CIMZIA [Suspect]
     Indication: PSORIATIC ARTHROPATHY
     Dosage: FROM 2 YEARS
     Route: 058
  14. HYDROCHLOROTHIAZIDE [Concomitant]
     Indication: NEPHROLITHIASIS
     Dosage: FROM 2 YEARS
     Route: 048

REACTIONS (6)
  - NASOPHARYNGITIS [None]
  - WHEEZING [None]
  - BLOOD URINE [None]
  - STOMATITIS [None]
  - PSORIASIS [None]
  - COUGH [None]
